FAERS Safety Report 19536186 (Version 1)
Quarter: 2021Q3

REPORT INFORMATION
  Report Type: Spontaneous
  Country: US (occurrence: US)
  Receive Date: 20210714
  Receipt Date: 20210714
  Transmission Date: 20211014
  Serious: Yes (Other)
  Sender: FDA-Public Use
  Company Number: None

PATIENT
  Age: 53 Year
  Sex: Female
  Weight: 67.5 kg

DRUGS (1)
  1. MIRTAZAPINE. [Suspect]
     Active Substance: MIRTAZAPINE
     Indication: INSOMNIA
     Dosage: ?          QUANTITY:1 TABLET(S);?
     Route: 048
     Dates: start: 20210308, end: 20210317

REACTIONS (14)
  - Chest pain [None]
  - Myalgia [None]
  - Adverse drug reaction [None]
  - Anxiety [None]
  - Withdrawal syndrome [None]
  - Crying [None]
  - Tremor [None]
  - Feeling abnormal [None]
  - Influenza like illness [None]
  - Fatigue [None]
  - Insomnia [None]
  - Dyspnoea [None]
  - Suicidal ideation [None]
  - Emotional disorder [None]

NARRATIVE: CASE EVENT DATE: 20210317
